FAERS Safety Report 5515058-6 (Version None)
Quarter: 2007Q4

REPORT INFORMATION
  Report Type: 
  Country: None (occurrence: None)
  Receive Date: 20071113
  Receipt Date: 20070103
  Transmission Date: 20080405
  Serious: No
  Sender: FDA-Public Use
  Company Number: A0630629A

PATIENT
  Age: 75 Year
  Sex: Female

DRUGS (7)
  1. COREG [Suspect]
     Dosage: 3.125MG FOUR TIMES PER DAY
     Route: 048
     Dates: start: 20061001
  2. TORSEMIDE [Concomitant]
  3. BENADRYL [Concomitant]
  4. ALLOPURINOL [Concomitant]
  5. XANAX [Concomitant]
  6. FIORICET [Concomitant]
  7. POTASSIUM CHLORIDE [Concomitant]

REACTIONS (3)
  - ADVERSE EVENT [None]
  - PARAESTHESIA [None]
  - RASH [None]
